FAERS Safety Report 6652524-4 (Version None)
Quarter: 2010Q1

REPORT INFORMATION
  Report Type: 
  Country: None (occurrence: None)
  Receive Date: 20100325
  Receipt Date: 20100325
  Transmission Date: 20100710
  Serious: Yes (Hospitalization)
  Sender: FDA-Public Use
  Company Number: None

PATIENT
  Age: 54 Year
  Sex: Male

DRUGS (1)
  1. PREDNISONE [Suspect]
     Indication: HYPERSENSITIVITY
     Dosage: 20 MG EVERY DAY PO
     Route: 048
     Dates: start: 20091202, end: 20100104

REACTIONS (6)
  - AGITATION [None]
  - ANXIETY [None]
  - FEELING OF DESPAIR [None]
  - INSOMNIA [None]
  - SUICIDAL IDEATION [None]
  - TACHYPHRENIA [None]
